FAERS Safety Report 8183011-2 (Version None)
Quarter: 2012Q1

REPORT INFORMATION
  Report Type: 
  Country: None (occurrence: None)
  Receive Date: 20120305
  Receipt Date: 20111207
  Transmission Date: 20120608
  Serious: No
  Sender: FDA-Public Use
  Company Number: US-BRISTOL-MYERS SQUIBB COMPANY-16218356

PATIENT
  Age: 50 Year
  Sex: Female

DRUGS (3)
  1. LEXAPRO [Concomitant]
  2. LISINOPRIL [Concomitant]
  3. KOMBIGLYZE XR [Suspect]
     Dates: start: 20110901

REACTIONS (3)
  - SOMNOLENCE [None]
  - HEADACHE [None]
  - DECREASED APPETITE [None]
